FAERS Safety Report 18174397 (Version 3)
Quarter: 2020Q3

REPORT INFORMATION
  Report Type: Spontaneous
  Country: NZ (occurrence: NZ)
  Receive Date: 20200820
  Receipt Date: 20200914
  Transmission Date: 20201103
  Serious: Yes (Death)
  Sender: FDA-Public Use
  Company Number: NZ-MYLANLABS-2020M1072696

PATIENT
  Sex: Female

DRUGS (7)
  1. CLOZARIL [Suspect]
     Active Substance: CLOZAPINE
     Indication: PSYCHOTIC DISORDER
  2. DOCUSATE/SENNOSIDES [Concomitant]
     Active Substance: DOCUSATE SODIUM\SENNOSIDES A AND B
     Indication: CONSTIPATION
     Dosage: UNK, 50/8 MG NOCTE
     Dates: end: 20200802
  3. DONEPEZIL. [Concomitant]
     Active Substance: DONEPEZIL
     Indication: DEMENTIA WITH LEWY BODIES
     Dosage: 10 UNK
     Dates: end: 20200802
  4. CLOZARIL [Suspect]
     Active Substance: CLOZAPINE
     Indication: SCHIZOPHRENIA
     Dosage: 75 MILLIGRAM, PM
     Route: 048
     Dates: start: 20191227, end: 20200802
  5. LORAZEPAM. [Concomitant]
     Active Substance: LORAZEPAM
     Indication: ANXIETY
     Dosage: 1 MILLIGRAM, BID
     Route: 048
     Dates: end: 20200802
  6. CLOZARIL [Suspect]
     Active Substance: CLOZAPINE
     Indication: DEMENTIA WITH LEWY BODIES
  7. VENLAFAXINE [Concomitant]
     Active Substance: VENLAFAXINE HYDROCHLORIDE
     Indication: DEPRESSION
     Dosage: 300 MILLIGRAM, PM
     Route: 048

REACTIONS (1)
  - Off label use [Fatal]
